FAERS Safety Report 16960363 (Version 2)
Quarter: 2019Q4

REPORT INFORMATION
  Report Type: Spontaneous
  Country: US (occurrence: US)
  Receive Date: 20191025
  Receipt Date: 20191028
  Transmission Date: 20200122
  Serious: No
  Sender: FDA-Public Use
  Company Number: US-PFIZER INC-2019462719

PATIENT
  Sex: Female

DRUGS (1)
  1. CHANTIX [Suspect]
     Active Substance: VARENICLINE TARTRATE
     Dosage: UNK

REACTIONS (4)
  - Rash [Not Recovered/Not Resolved]
  - Skin exfoliation [Unknown]
  - Skin fissures [Unknown]
  - Pruritus [Not Recovered/Not Resolved]
